FAERS Safety Report 9716459 (Version 1)
Quarter: 2013Q4

REPORT INFORMATION
  Report Type: Spontaneous
  Country: DE (occurrence: None)
  Receive Date: 20131125
  Receipt Date: 20131125
  Transmission Date: 20140711
  Serious: Yes (Death, Hospitalization)
  Sender: FDA-Public Use
  Company Number: 2013P1021109

PATIENT
  Age: 59 Year
  Sex: Female

DRUGS (1)
  1. DEXAMETHASONE [Suspect]
     Indication: ASTROCYTOMA

REACTIONS (14)
  - General physical health deterioration [None]
  - Respiratory failure [None]
  - Pneumocystis jirovecii pneumonia [None]
  - Nephropathy toxic [None]
  - Septic shock [None]
  - Renal failure [None]
  - Haemofiltration [None]
  - Cerebral ischaemia [None]
  - Disseminated intravascular coagulation [None]
  - Multi-organ failure [None]
  - Bronchopulmonary aspergillosis [None]
  - Cerebral haemorrhage [None]
  - Immunosuppression [None]
  - Brain oedema [None]
